FAERS Safety Report 5922566-2 (Version None)
Quarter: 2008Q4

REPORT INFORMATION
  Report Type: 
  Country: None (occurrence: None)
  Receive Date: 20081017
  Receipt Date: 20081009
  Transmission Date: 20090506
  Serious: Yes (Other)
  Sender: FDA-Public Use
  Company Number: PHHY2008JP24118

PATIENT
  Age: 77 Year
  Sex: Male

DRUGS (5)
  1. NEORAL [Suspect]
     Indication: MYASTHENIA GRAVIS
     Dosage: 100 MG PER DAY
     Route: 048
     Dates: start: 20080919, end: 20081007
  2. PREDONINE [Suspect]
     Dosage: 80 MG PER DAY
     Route: 048
  3. COTRIM [Concomitant]
     Dosage: 1 DF, UNK
     Route: 048
  4. LANSOPRAZOLE [Concomitant]
     Dosage: 15 MG PER DAY
     Route: 048
  5. BONALON [Concomitant]
     Dosage: 35 MG PER DAY
     Route: 048

REACTIONS (2)
  - PLATELET COUNT DECREASED [None]
  - VENOUS THROMBOSIS LIMB [None]
